FAERS Safety Report 9938988 (Version 1)
Quarter: 2014Q1

REPORT INFORMATION
  Report Type: Report from Study
  Country: US (occurrence: US)
  Receive Date: 20140303
  Receipt Date: 20140303
  Transmission Date: 20141002
  Serious: No
  Sender: FDA-Public Use
  Company Number: US-ABBVIE-13P-163-1034005-00

PATIENT
  Age: 42 Year
  Sex: Male

DRUGS (10)
  1. HUMIRA [Suspect]
     Indication: CROHN^S DISEASE
     Route: 058
     Dates: start: 20121223, end: 20121223
  2. HUMIRA [Suspect]
     Route: 058
     Dates: start: 20130107
  3. PENTASA [Concomitant]
     Indication: CROHN^S DISEASE
     Dosage: 500 MG X 2 TABLETS THREE TIMES DAILY
  4. AZATHIOPRINE [Concomitant]
     Indication: CROHN^S DISEASE
     Dosage: 25 MG DAILY
  5. LEXAPRO [Concomitant]
     Indication: ANXIETY
     Dosage: 30 MG DAILY
  6. BABY ASPIRIN [Concomitant]
     Indication: PRODUCT USED FOR UNKNOWN INDICATION
     Dosage: 81 MG DAILY
  7. MULTIVITAMIN [Concomitant]
     Indication: PRODUCT USED FOR UNKNOWN INDICATION
     Dosage: DAILY
  8. FISH OIL [Concomitant]
     Indication: PRODUCT USED FOR UNKNOWN INDICATION
     Dosage: DAILY
  9. LIPITOR [Concomitant]
     Indication: BLOOD CHOLESTEROL INCREASED
     Dosage: UNKNOWN DOSAGE DAILY
  10. DIOVAN [Concomitant]
     Indication: HYPERTENSION
     Dosage: UNKNOWN DOSAGE DAILY

REACTIONS (1)
  - Device malfunction [Unknown]
